FAERS Safety Report 10367449 (Version 3)
Quarter: 2015Q3

REPORT INFORMATION
  Report Type: Spontaneous
  Country: JP (occurrence: JP)
  Receive Date: 20140807
  Receipt Date: 20150716
  Transmission Date: 20151125
  Serious: Yes (Hospitalization)
  Sender: FDA-Public Use
  Company Number: PHHY2014JP096263

PATIENT
  Age: 68 Year
  Sex: Male
  Weight: 53 kg

DRUGS (12)
  1. ALOXI [Concomitant]
     Active Substance: PALONOSETRON HYDROCHLORIDE
     Indication: LUNG ADENOCARCINOMA
     Dosage: 0.75 MG, QMO
     Route: 041
     Dates: start: 20110525, end: 20111116
  2. LANSOPRAZOLE. [Concomitant]
     Active Substance: LANSOPRAZOLE
     Indication: PRODUCT USED FOR UNKNOWN INDICATION
     Dosage: 15 MG, QD
     Route: 048
     Dates: start: 20110509
  3. PANVITAN [Concomitant]
     Indication: PRODUCT USED FOR UNKNOWN INDICATION
     Dosage: 1 G, QD
     Route: 048
     Dates: start: 20110509
  4. ZOMETA [Suspect]
     Active Substance: ZOLEDRONIC ACID
     Dosage: UNK
     Route: 041
     Dates: end: 20121212
  5. CARBOPLATIN. [Concomitant]
     Active Substance: CARBOPLATIN
     Indication: LUNG ADENOCARCINOMA
     Dosage: 400 MG, QMO
     Route: 041
     Dates: start: 20110525, end: 20111116
  6. METHYCOBAL [Concomitant]
     Active Substance: METHYLCOBALAMIN
     Indication: PRODUCT USED FOR UNKNOWN INDICATION
     Dosage: 1000 UG, Q2MO
     Route: 041
     Dates: start: 20110509
  7. ALIMTA [Concomitant]
     Active Substance: PEMETREXED DISODIUM
     Indication: LUNG ADENOCARCINOMA
     Dosage: 760 MG, QMO
     Route: 041
     Dates: start: 20110525
  8. AVASTIN [Suspect]
     Active Substance: BEVACIZUMAB
     Indication: LUNG ADENOCARCINOMA
     Dosage: 800 MG, QMO
     Route: 041
     Dates: start: 20110525, end: 20130206
  9. TAKEPRON [Concomitant]
     Active Substance: LANSOPRAZOLE
     Indication: PRODUCT USED FOR UNKNOWN INDICATION
     Dosage: 15 MG, QD
     Route: 048
     Dates: start: 20110509
  10. ALIMTA [Concomitant]
     Active Substance: PEMETREXED DISODIUM
     Dosage: 740 MG, QMO
     Route: 041
     Dates: start: 20130306
  11. DEXART [Concomitant]
     Active Substance: DEXAMETHASONE SODIUM PHOSPHATE
     Indication: LUNG ADENOCARCINOMA
     Dosage: 6.6 MG, QMO
     Route: 041
     Dates: start: 20110525
  12. ZOMETA [Suspect]
     Active Substance: ZOLEDRONIC ACID
     Indication: METASTASES TO BONE
     Dosage: 4 MG, QMO
     Route: 041
     Dates: start: 20110516, end: 201301

REACTIONS (15)
  - Gingival bleeding [Recovering/Resolving]
  - Toothache [Recovering/Resolving]
  - Exposed bone in jaw [Recovering/Resolving]
  - Wound complication [Recovering/Resolving]
  - Blood potassium decreased [Unknown]
  - Pain in jaw [Recovering/Resolving]
  - Primary sequestrum [Recovering/Resolving]
  - Hypoaesthesia oral [Recovering/Resolving]
  - Haematocrit decreased [Unknown]
  - Haemoglobin decreased [Unknown]
  - Purulent discharge [Recovering/Resolving]
  - Blood glucose increased [Unknown]
  - Osteonecrosis of jaw [Recovering/Resolving]
  - Platelet count increased [Unknown]
  - Red blood cell count decreased [Unknown]

NARRATIVE: CASE EVENT DATE: 201301
